FAERS Safety Report 9989812 (Version 1)
Quarter: 2014Q1

REPORT INFORMATION
  Report Type: Spontaneous
  Country: US (occurrence: None)
  Receive Date: 20140123
  Receipt Date: 20140123
  Transmission Date: 20141002
  Serious: Yes (Hospitalization)
  Sender: FDA-Public Use
  Company Number: UTC-037514

PATIENT
  Age: 25 Year
  Sex: Female
  Weight: 25.76 kg

DRUGS (1)
  1. REMODULIN (2.5 MILLIGRAM/MILLILITERS, INJECTION FOR INFUSION)(TREPROSTINIL SODIUM) [Suspect]
     Indication: COR PULMONALE CHRONIC
     Dosage: 61.92 UG/KG (0.043 UG/KG,L IN 1 MIN),INTRAVENOUS DRIP
     Route: 041
     Dates: start: 20100312

REACTIONS (1)
  - Device related infection [None]
